FAERS Safety Report 21690911 (Version 1)
Quarter: 2022Q4

REPORT INFORMATION
  Report Type: Spontaneous
  Country: GR (occurrence: GR)
  Receive Date: 20221207
  Receipt Date: 20221207
  Transmission Date: 20230113
  Serious: Yes (Hospitalization)
  Sender: FDA-Public Use
  Company Number: GR-ENDO PHARMACEUTICALS INC-2022-006452

PATIENT
  Age: 38 Year
  Sex: Female

DRUGS (3)
  1. RISPERIDONE [Suspect]
     Active Substance: RISPERIDONE
     Indication: Schizophrenia
     Dosage: UNK UNKNOWN, UNKNOWN
     Route: 065
  2. RISPERIDONE [Suspect]
     Active Substance: RISPERIDONE
     Dosage: GRADUAL TITRATION TO 6 MG, UNKNOWN
     Route: 065
  3. OLANZAPINE [Concomitant]
     Active Substance: OLANZAPINE
     Indication: Schizophrenia
     Dosage: 20 MG, UNKNOWN
     Route: 065

REACTIONS (1)
  - Hepatotoxicity [Recovered/Resolved]
